FAERS Safety Report 5713305-9 (Version None)
Quarter: 2008Q2

REPORT INFORMATION
  Report Type: 
  Country: None (occurrence: None)
  Receive Date: 20080422
  Receipt Date: 20080416
  Transmission Date: 20081010
  Serious: No
  Sender: FDA-Public Use
  Company Number: US-GILEAD-2008-0015992

PATIENT
  Sex: Female

DRUGS (1)
  1. LETAIRIS [Suspect]
     Indication: PULMONARY HYPERTENSION
     Dosage: ^1/2 PILL DAILY^
     Dates: start: 20080229

REACTIONS (4)
  - FLUID RETENTION [None]
  - HEART RATE INCREASED [None]
  - HOT FLUSH [None]
  - INCOHERENT [None]
